FAERS Safety Report 4953740-X (Version None)
Quarter: 2006Q1

REPORT INFORMATION
  Report Type: 
  Country: None (occurrence: None)
  Receive Date: 20060323
  Receipt Date: 20060323
  Transmission Date: 20060701
  Serious: Yes (Life-Threatening)
  Sender: FDA-Public Use
  Company Number: None

PATIENT
  Age: 75 Year
  Sex: Male
  Weight: 82.5547 kg

DRUGS (3)
  1. CELECOXIB 200 MG PFIZER [Suspect]
     Indication: COLON CANCER METASTATIC
     Dosage: 400 MG BID PO
     Route: 048
     Dates: start: 20020624, end: 20020825
  2. CAPECITABINE 500 MG ROCHE [Suspect]
     Indication: COLON CANCER METASTATIC
     Dosage: 200 MG BID PO
     Route: 048
     Dates: start: 20020624, end: 20020825
  3. IRINOTECAN 100 MG IN 5 ML, 40 MG IN A 2 ML SQ SOL PFIZER [Suspect]
     Indication: COLON CANCER METASTATIC
     Dosage: 135 MG WEEKLY IV
     Route: 042
     Dates: start: 20020703, end: 20020821

REACTIONS (6)
  - DEHYDRATION [None]
  - DIARRHOEA [None]
  - DIARRHOEA INFECTIOUS [None]
  - NAUSEA [None]
  - SMALL INTESTINAL OBSTRUCTION [None]
  - VOMITING [None]
